FAERS Safety Report 9269594 (Version 2)
Quarter: 2013Q3

REPORT INFORMATION
  Report Type: Spontaneous
  Country: IE (occurrence: IE)
  Receive Date: 20130503
  Receipt Date: 20130820
  Transmission Date: 20140515
  Serious: Yes (Other)
  Sender: FDA-Public Use
  Company Number: IE-NOVOPROD-376713

PATIENT
  Age: 47 Year
  Sex: Female
  Weight: 81.2 kg

DRUGS (6)
  1. VICTOZA [Suspect]
     Indication: TYPE 2 DIABETES MELLITUS
     Dosage: 0.6 MG, QD
     Route: 058
     Dates: start: 20101020
  2. VICTOZA [Suspect]
     Dosage: 1.2 MG, QD
     Route: 058
  3. VICTOZA [Suspect]
     Dosage: 1.8 MG, QD
     Route: 058
     Dates: end: 20110601
  4. GLUCOPHAGE [Concomitant]
     Dosage: 1 G, BID
  5. NUSEALS ASPIRN [Concomitant]
     Dosage: 75 MG, QD
  6. RAMIPRIL [Concomitant]
     Dosage: 5 MG, QD

REACTIONS (3)
  - Cholecystitis acute [Recovered/Resolved]
  - Cholecystitis acute [Recovered/Resolved]
  - Weight decreased [Unknown]
